FAERS Safety Report 15890938 (Version 2)
Quarter: 2019Q2

REPORT INFORMATION
  Report Type: Spontaneous
  Country: AT (occurrence: AT)
  Receive Date: 20190130
  Receipt Date: 20190402
  Transmission Date: 20190711
  Serious: Yes (Hospitalization)
  Sender: FDA-Public Use
  Company Number: AT-ELI_LILLY_AND_COMPANY-AT201901010257

PATIENT
  Age: 76 Year
  Sex: Female
  Weight: 52 kg

DRUGS (1)
  1. FORSTEO 250UG/ML [Suspect]
     Active Substance: TERIPARATIDE
     Indication: PRODUCT USED FOR UNKNOWN INDICATION
     Dosage: UNK UNK, UNKNOWN
     Route: 065
     Dates: start: 20180315

REACTIONS (2)
  - Osteoporotic fracture [Unknown]
  - Pulmonary tuberculosis [Recovering/Resolving]

NARRATIVE: CASE EVENT DATE: 201810
